FAERS Safety Report 13295644 (Version 1)
Quarter: 2017Q1

REPORT INFORMATION
  Report Type: Spontaneous
  Country: US (occurrence: US)
  Receive Date: 20170303
  Receipt Date: 20170303
  Transmission Date: 20170428
  Serious: Yes (Other)
  Sender: FDA-Public Use
  Company Number: US-TEVA-744697USA

PATIENT
  Sex: Female

DRUGS (3)
  1. METFORMIN HYDROCHLORIDE EXTENDED-RELEASE TABLETS, 500 MG, 1000 MG (FOR [Suspect]
     Active Substance: METFORMIN HYDROCHLORIDE
     Dosage: 1500 MILLIGRAM DAILY;
  2. METFORMIN HYDROCHLORIDE EXTENDED-RELEASE TABLETS, 500 MG, 1000 MG (FOR [Suspect]
     Active Substance: METFORMIN HYDROCHLORIDE
     Dosage: 1000 MILLIGRAM DAILY;
  3. METFORMIN HYDROCHLORIDE EXTENDED-RELEASE TABLETS, 500 MG, 1000 MG (FOR [Suspect]
     Active Substance: METFORMIN HYDROCHLORIDE
     Dosage: 2000 MILLIGRAM DAILY;

REACTIONS (2)
  - Pancreatitis [Unknown]
  - No adverse event [Unknown]
